FAERS Safety Report 15631798 (Version 1)
Quarter: 2018Q4

REPORT INFORMATION
  Report Type: Spontaneous
  Country: US (occurrence: US)
  Receive Date: 20181118
  Receipt Date: 20181118
  Transmission Date: 20190205
  Serious: Yes (Hospitalization, Other)
  Sender: FDA-Public Use
  Company Number: None

PATIENT
  Age: 44 Year
  Sex: Female
  Weight: 76.5 kg

DRUGS (3)
  1. DULOXETINE. [Suspect]
     Active Substance: DULOXETINE
     Indication: PAIN
     Dosage: ?          QUANTITY:1 CAPSULE(S);OTHER FREQUENCY:PRN TO GET OFF;?
     Route: 048
     Dates: start: 20160301, end: 20181118
  2. ICD WITH DIFIBULATOR [Concomitant]
  3. DULOXETINE. [Suspect]
     Active Substance: DULOXETINE
     Indication: DEPRESSION
     Dosage: ?          QUANTITY:1 CAPSULE(S);OTHER FREQUENCY:PRN TO GET OFF;?
     Route: 048
     Dates: start: 20160301, end: 20181118

REACTIONS (3)
  - Drug withdrawal syndrome [None]
  - Electrocardiogram QT prolonged [None]
  - Hallucination [None]

NARRATIVE: CASE EVENT DATE: 20180302
